FAERS Safety Report 4569606-3 (Version None)
Quarter: 2005Q1

REPORT INFORMATION
  Report Type: 
  Country: None (occurrence: None)
  Receive Date: 20050203
  Receipt Date: 20050126
  Transmission Date: 20050727
  Serious: Yes (Hospitalization)
  Sender: FDA-Public Use
  Company Number: JP-ABBOTT-05P-087-0288978-00

PATIENT
  Age: 75 Year
  Sex: Male

DRUGS (12)
  1. CLARITH [Suspect]
     Indication: BRONCHITIS CHRONIC
     Route: 048
     Dates: start: 20040806, end: 20040810
  2. CIMETIDINE [Concomitant]
     Indication: GASTRITIS
     Route: 048
     Dates: end: 20040810
  3. DIPYRIDAMOLE [Concomitant]
     Indication: ANGINA PECTORIS
     Route: 048
     Dates: end: 20040810
  4. LEVOTHYROXINE SODIUM [Concomitant]
     Indication: HYPOTHYROIDISM
     Route: 048
     Dates: end: 20040810
  5. PRANLUKAST HYDRATE [Concomitant]
     Indication: ASTHMA
     Route: 048
     Dates: start: 20030207, end: 20040810
  6. THEOPHYLLINE [Concomitant]
     Indication: ASTHMA
     Route: 048
     Dates: start: 20031014, end: 20040810
  7. TRIAZOLAM [Concomitant]
     Indication: INSOMNIA
     Route: 048
     Dates: end: 20040810
  8. FUDOSTEINE [Concomitant]
     Indication: BRONCHITIS CHRONIC
     Route: 048
     Dates: start: 20040806, end: 20040810
  9. TELITHROMCYIN [Concomitant]
     Indication: BRONCHITIS
     Route: 048
     Dates: start: 20040806, end: 20040810
  10. SENNA LEAF-SENNA POD [Concomitant]
     Indication: CONSTIPATION
     Route: 048
     Dates: end: 20040810
  11. MOSAPRIDE CITRATE [Concomitant]
     Indication: GASTRITIS
     Route: 048
     Dates: start: 20020108, end: 20040810
  12. TIQUIZIUM BROMIDE [Concomitant]
     Indication: GASTRITIS
     Route: 048
     Dates: start: 20040123, end: 20040810

REACTIONS (3)
  - HEPATIC FUNCTION ABNORMAL [None]
  - MALAISE [None]
  - RHABDOMYOLYSIS [None]
